FAERS Safety Report 9055214 (Version 1)
Quarter: 2013Q1

REPORT INFORMATION
  Report Type: Spontaneous
  Country: US (occurrence: US)
  Receive Date: 20130206
  Receipt Date: 20130206
  Transmission Date: 20140127
  Serious: Yes (Other)
  Sender: FDA-Public Use
  Company Number: US-ELI_LILLY_AND_COMPANY-US201301009828

PATIENT
  Age: 84 Year
  Sex: Male

DRUGS (1)
  1. FORTEO [Suspect]
     Indication: ARTHRITIS
     Dosage: UNK
     Dates: end: 20130119

REACTIONS (3)
  - Prostate cancer [Unknown]
  - Injection site erythema [Unknown]
  - Off label use [Unknown]
